FAERS Safety Report 25449120 (Version 1)
Quarter: 2025Q2

REPORT INFORMATION
  Report Type: Spontaneous
  Country: US (occurrence: US)
  Receive Date: 20250618
  Receipt Date: 20250618
  Transmission Date: 20250717
  Serious: Yes (Death, Hospitalization, Other)
  Sender: Haleon PLC
  Company Number: US-HALEON-2247247

PATIENT
  Age: 21 Year
  Sex: Male

DRUGS (4)
  1. ACETAMINOPHEN [Suspect]
     Active Substance: ACETAMINOPHEN
     Indication: Product used for unknown indication
     Route: 048
  2. BUPROPION [Suspect]
     Active Substance: BUPROPION
     Indication: Product used for unknown indication
  3. OLANZAPINE [Concomitant]
     Active Substance: OLANZAPINE
     Indication: Product used for unknown indication
     Route: 048
  4. FLUOXETINE [Concomitant]
     Active Substance: FLUOXETINE HYDROCHLORIDE
     Indication: Product used for unknown indication

REACTIONS (17)
  - Multiple organ dysfunction syndrome [Fatal]
  - Toxicity to various agents [Unknown]
  - Methaemoglobinaemia [Unknown]
  - Vomiting [Unknown]
  - Unresponsive to stimuli [Unknown]
  - Seizure [Unknown]
  - Generalised tonic-clonic seizure [Unknown]
  - Sinus tachycardia [Unknown]
  - Acidosis [Unknown]
  - Liver function test [Unknown]
  - Cardiac failure congestive [Unknown]
  - Pulmonary oedema [Unknown]
  - Pleural effusion [Unknown]
  - Lactic acidosis [Unknown]
  - Renal failure [Unknown]
  - Metabolic acidosis [Unknown]
  - Intentional overdose [Unknown]
